FAERS Safety Report 22124115 (Version 1)
Quarter: 2023Q1

REPORT INFORMATION
  Report Type: Spontaneous
  Country: US (occurrence: US)
  Receive Date: 20230322
  Receipt Date: 20230322
  Transmission Date: 20230418
  Serious: No
  Sender: FDA-Public Use
  Company Number: US-MYLANLABS-2023M1027623

PATIENT
  Sex: Female
  Weight: 74.84 kg

DRUGS (1)
  1. AMLODIPINE BESYLATE AND VALSARTAN [Suspect]
     Active Substance: AMLODIPINE BESYLATE\VALSARTAN
     Indication: Blood pressure abnormal
     Dosage: UNK UNK, QD, (5/320 MILLIGRAM TO BE TAKEN ONCE A DAY)
     Route: 065

REACTIONS (5)
  - Arthralgia [Unknown]
  - Back pain [Unknown]
  - Headache [Unknown]
  - Pruritus [Unknown]
  - Expired product administered [Unknown]
